FAERS Safety Report 4803370-5 (Version None)
Quarter: 2005Q4

REPORT INFORMATION
  Report Type: 
  Country: None (occurrence: None)
  Receive Date: 20051014
  Receipt Date: 20050929
  Transmission Date: 20060501
  Serious: Yes (Life-Threatening, Other)
  Sender: FDA-Public Use
  Company Number: 505#3#2005-01677

PATIENT
  Age: 55 Year
  Sex: Male

DRUGS (1)
  1. ORAMET [Suspect]
     Indication: DIABETES MELLITUS NON-INSULIN-DEPENDENT
     Dosage: 1700 MILLIGRAM; P.O.
     Route: 048
     Dates: start: 20050917

REACTIONS (16)
  - ACIDOSIS [None]
  - ALCOHOL USE [None]
  - ANAEMIA [None]
  - BLOOD CREATININE INCREASED [None]
  - BLOOD PRESSURE DECREASED [None]
  - BLOOD PRESSURE INCREASED [None]
  - BLOOD THROMBIN ABNORMAL [None]
  - BLOOD URINE PRESENT [None]
  - FATIGUE [None]
  - HYPOTONIA [None]
  - LABORATORY TEST ABNORMAL [None]
  - LOSS OF CONSCIOUSNESS [None]
  - MACROCYTOSIS [None]
  - MALAISE [None]
  - METABOLIC DISORDER [None]
  - ULCER HAEMORRHAGE [None]
